FAERS Safety Report 5554538-4 (Version None)
Quarter: 2007Q4

REPORT INFORMATION
  Report Type: 
  Country: None (occurrence: None)
  Receive Date: 20071213
  Receipt Date: 20071019
  Transmission Date: 20080405
  Serious: Yes (Other)
  Sender: FDA-Public Use
  Company Number: US-PURDUE-USA_2007_0030199

PATIENT
  Sex: Female

DRUGS (3)
  1. ROXICET [Concomitant]
     Dosage: 30 MG, UNK
  2. VALIUM [Concomitant]
     Dosage: 10 MG, TID
  3. OXYCONTIN [Suspect]
     Indication: BACK PAIN
     Dosage: 40 MG, SEE TEXT
     Dates: start: 19970101

REACTIONS (17)
  - AMNESIA [None]
  - BALANCE DISORDER [None]
  - CARDIAC DISORDER [None]
  - CONFUSIONAL STATE [None]
  - DEEP VEIN THROMBOSIS [None]
  - DIZZINESS [None]
  - DRUG DEPENDENCE [None]
  - FEELING ABNORMAL [None]
  - GASTROINTESTINAL DISORDER [None]
  - HEADACHE [None]
  - INSOMNIA [None]
  - MALAISE [None]
  - NERVOUS SYSTEM DISORDER [None]
  - PAIN [None]
  - SPINAL DISORDER [None]
  - THROMBOSIS [None]
  - TRANSIENT ISCHAEMIC ATTACK [None]
